FAERS Safety Report 20670098 (Version 1)
Quarter: 2022Q2

REPORT INFORMATION
  Report Type: Spontaneous
  Country: PT (occurrence: PT)
  Receive Date: 20220404
  Receipt Date: 20220404
  Transmission Date: 20220721
  Serious: Yes (Death)
  Sender: FDA-Public Use
  Company Number: PT-NOVARTISPH-NVSC2022PT076071

PATIENT

DRUGS (2)
  1. DICLOFENAC [Suspect]
     Active Substance: DICLOFENAC
     Indication: Product used for unknown indication
     Dosage: UNK
     Route: 065
  2. THIOCOLCHICOSIDE [Suspect]
     Active Substance: THIOCOLCHICOSIDE
     Indication: Product used for unknown indication
     Dosage: UNK
     Route: 065

REACTIONS (9)
  - Blood pressure immeasurable [Fatal]
  - Bronchospasm [Fatal]
  - Respiratory distress [Fatal]
  - Hypotension [Fatal]
  - Hypoxia [Fatal]
  - Oxygen saturation decreased [Fatal]
  - Sinus tachycardia [Fatal]
  - Rash [Fatal]
  - Hyperhidrosis [Fatal]
